FAERS Safety Report 7546538-X (Version None)
Quarter: 2011Q2

REPORT INFORMATION
  Report Type: 
  Country: None (occurrence: None)
  Receive Date: 20110614
  Receipt Date: 20110516
  Transmission Date: 20111010
  Serious: Yes (Other)
  Sender: FDA-Public Use
  Company Number: US-BAYER-2011-016036

PATIENT
  Age: 40 Year
  Sex: Female
  Weight: 95 kg

DRUGS (10)
  1. YASMIN [Suspect]
     Indication: ORAL CONTRACEPTION
  2. MICROGESTIN 1.5/30 [Concomitant]
     Indication: CONTRACEPTION
     Dosage: UNK UNK, QD
     Route: 048
     Dates: start: 20000101, end: 20080101
  3. DOXYCYCLINE [Concomitant]
     Indication: ACNE
     Dosage: UNK UNK, QD
     Route: 048
     Dates: start: 20080101
  4. SPIRONOLACTONE [Concomitant]
     Indication: ACNE
     Dosage: UNK UNK, QD
     Route: 048
     Dates: start: 20080101
  5. NAPROXEN [Concomitant]
     Dosage: UNK
     Route: 048
     Dates: start: 20080101
  6. DROSPIRENONE AND ETHINYL ESTRADIOL [Suspect]
     Indication: ACNE
     Dosage: UNK
     Route: 048
     Dates: start: 20080101, end: 20090101
  7. YAZ [Suspect]
     Route: 048
  8. REGLAN [Concomitant]
     Indication: GASTROENTERITIS
     Dosage: UNK
     Dates: start: 20081013
  9. MORPHINE [Concomitant]
     Indication: GASTROENTERITIS
     Dosage: UNK
     Dates: start: 20081013
  10. YASMIN [Suspect]
     Indication: ACNE
     Dosage: UNK
     Route: 048
     Dates: start: 20080101, end: 20090101

REACTIONS (2)
  - GALLBLADDER DISORDER [None]
  - CHOLECYSTITIS [None]
